FAERS Safety Report 5245145-1 (Version None)
Quarter: 2007Q1

REPORT INFORMATION
  Report Type: 
  Country: None (occurrence: None)
  Receive Date: 20070223
  Receipt Date: 20070216
  Transmission Date: 20070707
  Serious: Yes (Hospitalization)
  Sender: FDA-Public Use
  Company Number: JP-JNJFOC-20050406208

PATIENT
  Sex: Male
  Weight: 50 kg

DRUGS (16)
  1. REMICADE [Suspect]
     Route: 042
  2. REMICADE [Suspect]
     Route: 042
  3. REMICADE [Suspect]
     Route: 042
  4. REMICADE [Suspect]
     Route: 042
  5. REMICADE [Suspect]
     Route: 042
  6. REMICADE [Suspect]
     Indication: CROHN'S DISEASE
     Route: 042
  7. PENTASA [Concomitant]
     Indication: CROHN'S DISEASE
     Dosage: 9 TABLETS
  8. RHEUMATREX [Concomitant]
  9. LAC-B [Concomitant]
     Indication: CROHN'S DISEASE
     Route: 048
  10. ENTERONON-R [Concomitant]
     Indication: CROHN'S DISEASE
     Route: 048
  11. GASTER D [Concomitant]
     Route: 048
  12. LEVOFLOXACIN [Concomitant]
     Route: 048
  13. TAKEPRON [Concomitant]
     Route: 048
  14. LASIX [Concomitant]
     Route: 048
  15. FLOMOX [Concomitant]
     Route: 048
  16. RENIVACE [Concomitant]
     Route: 048

REACTIONS (1)
  - THYROIDITIS SUBACUTE [None]
